FAERS Safety Report 7527729-0 (Version None)
Quarter: 2011Q2

REPORT INFORMATION
  Report Type: 
  Country: None (occurrence: None)
  Receive Date: 20110512
  Receipt Date: 20110413
  Transmission Date: 20111010
  Serious: No
  Sender: FDA-Public Use
  Company Number: 1000020097

PATIENT
  Age: 37 Year
  Sex: Female

DRUGS (14)
  1. WARFARIN SODIUM [Concomitant]
  2. BUSPAR (BUSPIRONE HYDROCHLORIDE) (10 MILLIGRAM, TABLETS) (BUSPIRONE HY [Concomitant]
  3. FIBER (POLYCARBOPHIL CALCIUM) (POLYCARBOPHIL CALCIUM) [Concomitant]
  4. SAVELLA [Suspect]
     Indication: FIBROMYALGIA
     Dosage: 12.5 MG (12.5 MG,1 IN 1 D),ORAL ; 25 MG (12,5 MG,2 IN 1 D),ORAL
     Route: 048
     Dates: start: 20110101
  5. SAVELLA [Suspect]
     Indication: FIBROMYALGIA
     Dosage: 12.5 MG (12.5 MG,1 IN 1 D),ORAL ; 25 MG (12,5 MG,2 IN 1 D),ORAL
     Route: 048
     Dates: start: 20110301, end: 20110101
  6. METFORMIN (METFORMIN) (TABLET) (METFORMIN) [Concomitant]
  7. NORCO (HYDROCODONE BITARTRATE, ACETAMINOPHEN) (TABLETS) (HYDROCODONE B [Concomitant]
  8. SKELAXIN (METAXALONE) (800 MILLIGRAM, TABLETS) (METAXALONE) [Concomitant]
  9. FISH OIL (FISH OIL) (FISH OIL) [Concomitant]
  10. LEVOTHYROXINE (LEVOTHYROXINE SODIUM) (100 MICROGRAM, TABLETS) (LEVOTHY [Concomitant]
  11. ZANTAC (RANITIDINE) (150 MILLIGRAM, TABLETS) (RANITIDINE) [Concomitant]
  12. GLIMEPIRIDE (GLIMEPIRIDE) (GLIMEPIRIDE) [Concomitant]
  13. FIORICET (AXOTAL) (TABLETS) (ZOLPIDEM) [Concomitant]
  14. CITALOPRAM (CITALOPRAM HYDROBROMIDE) (CITALOPRAM HYDROBROMIDE) [Concomitant]

REACTIONS (1)
  - DRUG SCREEN POSITIVE [None]
